FAERS Safety Report 17795628 (Version 1)
Quarter: 2020Q2

REPORT INFORMATION
  Report Type: Spontaneous
  Country: DE (occurrence: DE)
  Receive Date: 20200516
  Receipt Date: 20200516
  Transmission Date: 20200714
  Serious: Yes (Other)
  Sender: FDA-Public Use
  Company Number: DE-TEVA-2020-DE-1234952

PATIENT
  Sex: Female

DRUGS (4)
  1. METOPROLOL 100 - 1 A PHARMA [Suspect]
     Active Substance: METOPROLOL
     Indication: CORONARY ARTERY DISEASE
  2. METOPROLOL. [Suspect]
     Active Substance: METOPROLOL
     Indication: CORONARY ARTERY DISEASE
     Dosage: 100 MILLIGRAM DAILY; (1-0-1)
     Dates: start: 201909
  3. RASILEZ [Suspect]
     Active Substance: ALISKIREN
     Indication: PRODUCT USED FOR UNKNOWN INDICATION
     Dosage: 150 MG; THERAPY START AND END DATE: ASKED BUT UNKNOWN
     Route: 065
  4. METOPROLOL 100 - 1 A PHARMA [Suspect]
     Active Substance: METOPROLOL
     Indication: HYPERTENSION
     Dosage: 50 MG, BID (1-0-1); UNIT DOSE: 100MG; THERAPY END DATE: ASKED BUT UNKNOWN
     Route: 065
     Dates: start: 201909

REACTIONS (3)
  - Myalgia [Unknown]
  - Hyperhidrosis [Unknown]
  - Angina pectoris [Unknown]

NARRATIVE: CASE EVENT DATE: 201909
